FAERS Safety Report 5849580-X (Version None)
Quarter: 2008Q3

REPORT INFORMATION
  Report Type: 
  Country: None (occurrence: None)
  Receive Date: 20080819
  Receipt Date: 20080811
  Transmission Date: 20090109
  Serious: Yes (Death, Hospitalization, Disabling, Other)
  Sender: FDA-Public Use
  Company Number: US-TYCO HEALTHCARE/MALLINCKRODT-T200700715

PATIENT

DRUGS (74)
  1. OPTIMARK [Suspect]
     Indication: NUCLEAR MAGNETIC RESONANCE IMAGING BRAIN
     Dosage: 9 ML, SINGLE
     Dates: start: 20040514, end: 20040514
  2. OPTIMARK [Suspect]
     Indication: NUCLEAR MAGNETIC RESONANCE IMAGING
  3. PROHANCE [Suspect]
     Indication: NUCLEAR MAGNETIC RESONANCE IMAGING
     Dosage: UNK, SINGLE
  4. MULTIHANCE [Suspect]
     Indication: NUCLEAR MAGNETIC RESONANCE IMAGING
     Dosage: UNK, SINGLE
  5. OMNISCAN [Suspect]
     Indication: NUCLEAR MAGNETIC RESONANCE IMAGING
     Dosage: UNK, SINGLE
     Dates: start: 20030323, end: 20030323
  6. OMNISCAN [Suspect]
     Dosage: 7 ML, SINGLE
     Dates: start: 20030523, end: 20030523
  7. OMNISCAN [Suspect]
     Dosage: 8 ML, SINGLE
     Dates: start: 20030730, end: 20030730
  8. OMNISCAN [Suspect]
     Dosage: 8.8 ML, SINGLE
     Dates: start: 20030825, end: 20030825
  9. OMNISCAN [Suspect]
     Dosage: 10 ML, SINGLE
     Dates: start: 20030918, end: 20030918
  10. OMNISCAN [Suspect]
     Dosage: 8 ML, SINGLE
     Dates: start: 20040219, end: 20040219
  11. OMNISCAN [Suspect]
     Dosage: 7 ML, SINGLE
     Dates: start: 20040802, end: 20040802
  12. OMNISCAN [Suspect]
     Dosage: 7 ML, SINGLE
     Dates: start: 20041020, end: 20041020
  13. MAGNEVIST [Suspect]
     Indication: NUCLEAR MAGNETIC RESONANCE IMAGING
     Dosage: 7 ML, SINGLE
     Dates: start: 20030109, end: 20030109
  14. MAGNEVIST [Suspect]
     Dosage: 10 ML, SINGLE
     Dates: start: 20040522, end: 20040522
  15. MAGNEVIST [Suspect]
     Dosage: 7.6 ML, SINGLE
     Dates: start: 20040611, end: 20040611
  16. VINCRISTINE [Concomitant]
     Indication: CHEMOTHERAPY
     Dates: start: 19930101, end: 20040101
  17. DACTINOMYCIN [Concomitant]
     Indication: CHEMOTHERAPY
  18. CYTOXAN [Concomitant]
     Indication: CHEMOTHERAPY
     Dates: start: 20010101
  19. IFOSFAMIDE [Concomitant]
     Indication: CHEMOTHERAPY
     Dates: start: 20010625, end: 20010627
  20. ETOPOSIDE [Concomitant]
     Indication: CHEMOTHERAPY
     Dates: start: 20010625, end: 20010627
  21. MDP-SQUIBB [Concomitant]
     Dosage: 10.4 MCI, SINGLE
     Route: 042
     Dates: start: 20010605, end: 20010605
  22. MDP-SQUIBB [Concomitant]
     Dosage: 11 MCI, SINGLE
     Dates: start: 20030324, end: 20030324
  23. MDP-SQUIBB [Concomitant]
     Dosage: 8.8 MCI, SINGLE
     Route: 042
     Dates: start: 20010824, end: 20010824
  24. DIGOXIN [Concomitant]
     Dosage: 2 ML, UNK
  25. CAPTOPRIL [Concomitant]
     Indication: HYPERTENSION
     Dosage: 25 MG, UNK
  26. ROCALTROL [Concomitant]
     Indication: BLOOD CALCIUM DECREASED
     Dosage: 25 UG, UNK
     Dates: start: 19930101, end: 20040101
  27. BICITRA                            /00586801/ [Concomitant]
     Dosage: 30 ML, UNK
  28. BICITRA                            /00586801/ [Concomitant]
     Dates: start: 20030825
  29. BICITRA                            /00586801/ [Concomitant]
     Dates: end: 20030825
  30. BICITRA                            /00586801/ [Concomitant]
     Dosage: 11.7 MCI, UNK
  31. BICITRA                            /00586801/ [Concomitant]
     Dates: start: 20030825
  32. BICITRA                            /00586801/ [Concomitant]
     Dates: start: 20030825
  33. BICITRA                            /00586801/ [Concomitant]
     Dates: start: 20030825
  34. TUMS                               /00108001/ [Concomitant]
  35. ADRIAMYCIN PFS [Concomitant]
     Indication: CHEMOTHERAPY
     Dates: start: 20010101
  36. FILGRASTIM [Concomitant]
     Indication: INFECTION PROPHYLAXIS
     Dosage: 200 UG, UNK
     Route: 058
     Dates: start: 20010607
  37. DEXAMETHASONE [Concomitant]
     Dosage: 4 MG, UNK
     Route: 048
     Dates: start: 20010607
  38. DEXAMETHASONE [Concomitant]
     Dates: start: 19930101, end: 20010101
  39. RANITIDINE [Concomitant]
     Dosage: 150 MG, UNK
     Route: 048
     Dates: start: 20010607
  40. METOCLOPRAMIDE [Concomitant]
  41. DIPHENHYDRAMINE HCL [Concomitant]
  42. ONDANSETRON [Concomitant]
     Indication: PROPHYLAXIS OF NAUSEA AND VOMITING
     Dates: start: 20010101, end: 20040101
  43. AMLODIPINE [Concomitant]
  44. EPOETIN ALFA [Concomitant]
     Dates: start: 20010603
  45. EPOETIN ALFA [Concomitant]
     Dates: start: 20040522, end: 20040523
  46. ALLOPURINOL [Concomitant]
     Dosage: 100 MG, UNK
     Route: 048
     Dates: start: 20010531
  47. CALCIUM CARBONATE [Concomitant]
     Route: 048
     Dates: start: 20010530
  48. FERROUS SULFATE TAB [Concomitant]
     Indication: BLOOD IRON DECREASED
     Dosage: UNK, UNK
     Route: 048
     Dates: start: 20010530, end: 20040101
  49. MESNA [Concomitant]
     Indication: PROPHYLAXIS
     Dates: start: 20010101, end: 20020101
  50. LASIX [Concomitant]
     Route: 042
     Dates: start: 20010607, end: 20010607
  51. TISSUE PLASMINOGEN ACTIVATOR, RECOMBINATIVE [Concomitant]
     Indication: CATHETER RELATED COMPLICATION
     Dosage: 1 MG, UNK
     Route: 042
     Dates: start: 20010628, end: 20010628
  52. FOLIC ACID [Concomitant]
     Indication: ANAEMIA
  53. B COMPLEX                          /00212701/ [Concomitant]
     Dates: start: 20040421
  54. BACTRIM [Concomitant]
  55. TYLENOL (CAPLET) [Concomitant]
     Indication: ARTHRALGIA
     Dosage: UNK, PRN
     Dates: start: 19930101, end: 20040101
  56. NEPHRO-VITE RX [Concomitant]
  57. SODIUM BICARBONATE [Concomitant]
  58. NEURONTIN [Concomitant]
     Indication: CONVULSION
     Dosage: 50 MG, UNK
     Route: 048
     Dates: start: 20030301
  59. NEURONTIN [Concomitant]
     Dosage: 100 MG, UNK
     Route: 048
     Dates: start: 20030401
  60. PHOSLO [Concomitant]
  61. TOPAMAX [Concomitant]
  62. CARBATROL [Concomitant]
     Dosage: 200 MG, UNK
     Route: 048
     Dates: start: 20040612
  63. VICODIN [Concomitant]
  64. DEPAKOTE [Concomitant]
     Dates: start: 20040601
  65. AMITRIPTYLINE HCL [Concomitant]
  66. RENAGEL                            /01459901/ [Concomitant]
     Indication: RENAL FAILURE CHRONIC
     Dates: start: 20040601
  67. RED BLOOD CELLS [Concomitant]
     Dosage: 300 ML, UNK
     Dates: start: 20020306, end: 20020306
  68. RED BLOOD CELLS [Concomitant]
     Dates: start: 20040923, end: 20040923
  69. RED BLOOD CELLS [Concomitant]
     Dosage: 300 ML, UNK
     Dates: start: 20041223, end: 20041223
  70. RED BLOOD CELLS [Concomitant]
     Dates: start: 20041224, end: 20041224
  71. REGRANEX [Concomitant]
     Dates: start: 20041001
  72. TPN [Concomitant]
     Dates: start: 20040901
  73. OTHER CHEMOTHERAPEUTICS [Concomitant]
     Dates: start: 19930101, end: 19940101
  74. PROCRIT [Concomitant]

REACTIONS (2)
  - CARDIAC ARREST [None]
  - NEPHROGENIC SYSTEMIC FIBROSIS [None]
